FAERS Safety Report 5120695-7 (Version None)
Quarter: 2006Q4

REPORT INFORMATION
  Report Type: 
  Country: None (occurrence: None)
  Receive Date: 20061004
  Receipt Date: 20060930
  Transmission Date: 20070319
  Serious: Yes (Other)
  Sender: FDA-Public Use
  Company Number: US-BOEHRINGER INGELHEIM PHARMACEUTICALS, INC.-2006-BP-11548BP

PATIENT
  Sex: Female

DRUGS (1)
  1. VIRAMUNE [Suspect]

REACTIONS (1)
  - HEPATORENAL FAILURE [None]
